FAERS Safety Report 22917023 (Version 3)
Quarter: 2023Q4

REPORT INFORMATION
  Report Type: Spontaneous
  Country: US (occurrence: US)
  Receive Date: 20230907
  Receipt Date: 20231122
  Transmission Date: 20240110
  Serious: No
  Sender: FDA-Public Use
  Company Number: US-SA-SAC20230901000451

PATIENT
  Age: 3 Year
  Sex: Female

DRUGS (2)
  1. DUPIXENT [Suspect]
     Active Substance: DUPILUMAB
     Indication: Eczema
     Dosage: 200 MG, Q4W
     Route: 058
     Dates: start: 20230711
  2. DUPIXENT [Suspect]
     Active Substance: DUPILUMAB
     Indication: Dermatitis atopic

REACTIONS (7)
  - Acrochordon [Unknown]
  - Pruritus [Unknown]
  - Temperature intolerance [Unknown]
  - Skin papilloma [Unknown]
  - Pruritus [Unknown]
  - Skin discolouration [Unknown]
  - Eczema [Unknown]

NARRATIVE: CASE EVENT DATE: 20230101
